FAERS Safety Report 6881751-6 (Version None)
Quarter: 2010Q3

REPORT INFORMATION
  Report Type: 
  Country: None (occurrence: None)
  Receive Date: 20100729
  Receipt Date: 20100722
  Transmission Date: 20110219
  Serious: Yes (Other)
  Sender: FDA-Public Use
  Company Number: US-RANBAXY-2010US-36111

PATIENT

DRUGS (6)
  1. VERAPAMIL [Suspect]
     Indication: BLOOD PRESSURE
     Dosage: 240 MG, 1-2 TAB/DAY,1 IN MORNING AND 1/2 -1 TAB AT BEDTIME)
     Route: 065
  2. VERAPAMIL [Suspect]
     Indication: MIGRAINE
  3. SYNTHROID [Concomitant]
     Indication: HYPOTHYROIDISM
     Dosage: UNK
     Route: 065
  4. PREVACID [Concomitant]
     Indication: REFLUX OESOPHAGITIS
     Dosage: UNK
     Route: 065
  5. VALIUM [Concomitant]
     Indication: MYALGIA
     Dosage: UNK
     Route: 065
  6. DICLOXACILLIN [Concomitant]
     Indication: STAPHYLOCOCCAL INFECTION
     Route: 065

REACTIONS (17)
  - ANXIETY [None]
  - ARTHRALGIA [None]
  - BLOOD PRESSURE DECREASED [None]
  - BLOOD PRESSURE FLUCTUATION [None]
  - DIFFUSE VASCULITIS [None]
  - FEELING DRUNK [None]
  - HEADACHE [None]
  - HEART RATE DECREASED [None]
  - MALAISE [None]
  - MEMORY IMPAIRMENT [None]
  - NAUSEA [None]
  - NECK PAIN [None]
  - OVERDOSE [None]
  - PALPITATIONS [None]
  - TINNITUS [None]
  - VISUAL IMPAIRMENT [None]
  - VOMITING [None]
